FAERS Safety Report 8989742 (Version 2)
Quarter: 2013Q1

REPORT INFORMATION
  Report Type: Spontaneous
  Country: FR (occurrence: FR)
  Receive Date: 20121228
  Receipt Date: 20130110
  Transmission Date: 20140127
  Serious: Yes (Other)
  Sender: FDA-Public Use
  Company Number: FR-ABBOTT-12P-056-1025000-00

PATIENT
  Age: 60 Year
  Sex: Male
  Weight: 88 kg

DRUGS (2)
  1. HUMIRA [Suspect]
     Indication: PSORIATIC ARTHROPATHY
     Dates: start: 201206
  2. METOJECT [Concomitant]
     Indication: PSORIATIC ARTHROPATHY
     Route: 030
     Dates: start: 201109

REACTIONS (10)
  - Drug specific antibody present [Unknown]
  - Injection site pain [Unknown]
  - Injection site erythema [Unknown]
  - Injection site swelling [Unknown]
  - Injection site pain [Unknown]
  - Drug dose omission [Unknown]
  - Pain [Unknown]
  - Product quality issue [Unknown]
  - Drug dose omission [Unknown]
  - Drug dose omission [Unknown]
